FAERS Safety Report 4577271-4 (Version None)
Quarter: 2005Q1

REPORT INFORMATION
  Report Type: 
  Country: None (occurrence: None)
  Receive Date: 20050202
  Receipt Date: 20050119
  Transmission Date: 20050727
  Serious: Yes (Hospitalization)
  Sender: FDA-Public Use
  Company Number: 601748

PATIENT
  Age: 64 Year
  Sex: Female
  Weight: 61.2356 kg

DRUGS (3)
  1. GAMMAGARD S/D [Suspect]
     Indication: CHRONIC INFLAMMATORY DEMYELINATING POLYRADICULONEUROPATHY
     Dosage: 25 GM;QD;INTRAVENOUS
     Route: 042
     Dates: start: 20041202, end: 20050106
  2. ATENOLOL [Concomitant]
  3. PREDNISONE [Concomitant]

REACTIONS (1)
  - PULMONARY EMBOLISM [None]
